FAERS Safety Report 20849167 (Version 3)
Quarter: 2022Q4

REPORT INFORMATION
  Report Type: Report from Study
  Country: US (occurrence: US)
  Receive Date: 20220519
  Receipt Date: 20221020
  Transmission Date: 20230113
  Serious: No
  Sender: FDA-Public Use
  Company Number: US-NOVARTISTESTPH-NVSC2022US115816

PATIENT
  Sex: Male

DRUGS (1)
  1. ILARIS [Suspect]
     Active Substance: CANAKINUMAB
     Indication: Still^s disease
     Dosage: 300 MG (EVERY 4 WEEKS)
     Route: 058
     Dates: start: 202208

REACTIONS (3)
  - Symptom recurrence [Unknown]
  - Inappropriate schedule of product administration [Unknown]
  - Product leakage [Unknown]
